FAERS Safety Report 10663188 (Version 3)
Quarter: 2015Q1

REPORT INFORMATION
  Report Type: Spontaneous
  Country: US (occurrence: US)
  Receive Date: 20141218
  Receipt Date: 20150320
  Transmission Date: 20150720
  Serious: No
  Sender: FDA-Public Use
  Company Number: US-GALDERMA-US14003699

PATIENT
  Age: 67 Year
  Sex: Female

DRUGS (5)
  1. UNSPECIFIED MOISTURIZER [Concomitant]
     Active Substance: UNSPECIFIED INGREDIENT
     Indication: DRY SKIN PROPHYLAXIS
     Route: 061
  2. MIRVASO [Suspect]
     Active Substance: BRIMONIDINE TARTRATE
     Indication: ROSACEA
     Dosage: 0.33%
     Route: 061
     Dates: start: 20140409, end: 20140916
  3. COMPOUNDED THYROID MEDICATION [Concomitant]
     Route: 048
  4. UNSPECIFIED MULTIVITAMINS [Concomitant]
     Route: 048
  5. PROGESTERONE. [Concomitant]
     Active Substance: PROGESTERONE

REACTIONS (9)
  - Skin hypertrophy [Recovered/Resolved]
  - Pruritus [Recovered/Resolved]
  - Dermatitis [Recovered/Resolved]
  - Arthralgia [Recovered/Resolved]
  - Skin exfoliation [Recovered/Resolved]
  - Rash [Recovered/Resolved]
  - Pain of skin [Recovered/Resolved]
  - Skin irritation [Recovered/Resolved]
  - Erythema [Recovered/Resolved]

NARRATIVE: CASE EVENT DATE: 201408
